FAERS Safety Report 19987549 (Version 1)
Quarter: 2021Q4

REPORT INFORMATION
  Report Type: Spontaneous
  Country: US (occurrence: US)
  Receive Date: 20211022
  Receipt Date: 20211022
  Transmission Date: 20220304
  Serious: Yes (Life-Threatening, Hospitalization, Other)
  Sender: FDA-Public Use
  Company Number: US-LUPIN PHARMACEUTICALS INC.-2021-20240

PATIENT
  Age: 32 Year
  Sex: Female

DRUGS (2)
  1. METHYLPREDNISOLONE [Suspect]
     Active Substance: METHYLPREDNISOLONE
     Indication: Drug therapy
     Dosage: 1 GRAM PER 3 DAYS
     Route: 042
  2. RITUXIMAB [Concomitant]
     Active Substance: RITUXIMAB
     Indication: Rheumatoid arthritis
     Dosage: 1000 MILLIGRAM EVERY FOUR MONTHS (A TOTAL OF 3 TREATMENTS WERE GIVEN)
     Route: 065

REACTIONS (2)
  - Enterovirus infection [Recovering/Resolving]
  - Condition aggravated [Recovering/Resolving]
